FAERS Safety Report 10262925 (Version 6)
Quarter: 2015Q2

REPORT INFORMATION
  Report Type: Spontaneous
  Country: US (occurrence: US)
  Receive Date: 20140626
  Receipt Date: 20150622
  Transmission Date: 20150821
  Serious: Yes (Congenital Anomaly, Other)
  Sender: FDA-Public Use
  Company Number: US-ELI_LILLY_AND_COMPANY-US201406007702

PATIENT

DRUGS (1)
  1. PROZAC [Suspect]
     Active Substance: FLUOXETINE HYDROCHLORIDE
     Indication: PRODUCT USED FOR UNKNOWN INDICATION
     Route: 064

REACTIONS (12)
  - Velo-cardio-facial syndrome [Unknown]
  - Vocal cord thickening [Unknown]
  - Vesicoureteric reflux [Recovered/Resolved]
  - Speech disorder developmental [Unknown]
  - Single umbilical artery [Unknown]
  - Foetal exposure during pregnancy [Recovered/Resolved]
  - Ventricular septal defect [Recovered/Resolved]
  - Cleft palate [Recovered/Resolved]
  - Pyelocaliectasis [Recovered/Resolved]
  - Cleft lip [Recovered/Resolved]
  - Pelvi-ureteric obstruction [Recovered/Resolved]
  - Small for dates baby [Unknown]
